FAERS Safety Report 25069663 (Version 1)
Quarter: 2025Q1

REPORT INFORMATION
  Report Type: Spontaneous
  Country: IT (occurrence: IT)
  Receive Date: 20250312
  Receipt Date: 20250312
  Transmission Date: 20250409
  Serious: Yes (Hospitalization)
  Sender: MYLAN
  Company Number: IT-MYLANLABS-2025M1020640

PATIENT
  Age: 13 Year
  Sex: Male

DRUGS (10)
  1. MYCOPHENOLATE MOFETIL [Suspect]
     Active Substance: MYCOPHENOLATE MOFETIL
     Indication: Vanishing bile duct syndrome
  2. MYCOPHENOLATE MOFETIL [Suspect]
     Active Substance: MYCOPHENOLATE MOFETIL
  3. URSODIOL [Suspect]
     Active Substance: URSODIOL
     Indication: Epilepsy with myoclonic-atonic seizures
  4. METHYLPREDNISOLONE [Suspect]
     Active Substance: METHYLPREDNISOLONE
     Indication: Vanishing bile duct syndrome
     Dosage: 60 MILLIGRAM, QD
  5. METHYLPREDNISOLONE [Suspect]
     Active Substance: METHYLPREDNISOLONE
  6. IMMUNE GLOBULIN NOS [Suspect]
     Active Substance: IMMUNE GLOBULIN NOS
     Indication: Vanishing bile duct syndrome
  7. RIFAMPIN [Concomitant]
     Active Substance: RIFAMPIN
     Indication: Drug-induced liver injury
  8. RIFAMPIN [Concomitant]
     Active Substance: RIFAMPIN
     Indication: Drug reaction with eosinophilia and systemic symptoms
  9. CLOBAZAM [Concomitant]
     Active Substance: CLOBAZAM
     Indication: Epilepsy with myoclonic-atonic seizures
  10. VALPROATE [Concomitant]
     Active Substance: VALPROIC ACID
     Indication: Epilepsy with myoclonic-atonic seizures

REACTIONS (2)
  - Drug ineffective [Unknown]
  - Treatment failure [Unknown]
